FAERS Safety Report 8563976-7 (Version None)
Quarter: 2012Q3

REPORT INFORMATION
  Report Type: 
  Country: None (occurrence: None)
  Receive Date: 20120803
  Receipt Date: 20120731
  Transmission Date: 20120928
  Serious: Yes (Death)
  Sender: FDA-Public Use
  Company Number: PHEH2012US015168

PATIENT
  Sex: Male

DRUGS (6)
  1. ALLOPURINOL [Concomitant]
  2. NORVASC [Concomitant]
  3. ASPIRIN [Concomitant]
  4. GLEEVEC [Suspect]
     Indication: CHRONIC MYELOID LEUKAEMIA
     Dosage: 400 MG, QD
     Route: 048
     Dates: start: 20040211
  5. CARVEDILOL [Concomitant]
  6. LIPITOR [Concomitant]

REACTIONS (1)
  - DEATH [None]
